FAERS Safety Report 24122653 (Version 7)
Quarter: 2025Q1

REPORT INFORMATION
  Report Type: Spontaneous
  Country: CZ (occurrence: CZ)
  Receive Date: 20240723
  Receipt Date: 20250325
  Transmission Date: 20250409
  Serious: Yes (Life-Threatening, Hospitalization, Other)
  Sender: AUROBINDO
  Company Number: CZ-VITABALANS-065-2024

PATIENT
  Age: 70 Year
  Sex: Female

DRUGS (4)
  1. ACETAMINOPHEN [Suspect]
     Active Substance: ACETAMINOPHEN
     Indication: Type 2 diabetes mellitus
     Route: 065
  2. METFORMIN [Suspect]
     Active Substance: METFORMIN HYDROCHLORIDE
     Indication: Type 2 diabetes mellitus
     Route: 065
  3. SITAGLIPTIN [Suspect]
     Active Substance: SITAGLIPTIN
     Indication: Type 2 diabetes mellitus
     Route: 065
  4. ACETYLCYSTEINE [Concomitant]
     Active Substance: ACETYLCYSTEINE
     Indication: Glutathione decreased
     Route: 065

REACTIONS (10)
  - Septic shock [Recovered/Resolved]
  - Acidosis [Recovered/Resolved]
  - Ketoacidosis [Recovered/Resolved]
  - Altered state of consciousness [Unknown]
  - Cachexia [Unknown]
  - Pneumonia [Unknown]
  - Euglycaemic diabetic ketoacidosis [Unknown]
  - Metabolic acidosis [Recovered/Resolved]
  - Weight decreased [Unknown]
  - Drug ineffective [Unknown]
